FAERS Safety Report 22617197 (Version 1)
Quarter: 2023Q2

REPORT INFORMATION
  Report Type: Spontaneous
  Country: IT (occurrence: None)
  Receive Date: 20230620
  Receipt Date: 20230620
  Transmission Date: 20230722
  Serious: Yes (Hospitalization, Other)
  Sender: FDA-Public Use
  Company Number: None

PATIENT
  Age: 3 Year
  Sex: Male
  Weight: 15 kg

DRUGS (2)
  1. CARBOPLATIN [Suspect]
     Active Substance: CARBOPLATIN
     Indication: Glioma
     Route: 042
     Dates: start: 20230525, end: 20230525
  2. VINCRISTINE [Suspect]
     Active Substance: VINCRISTINE
     Indication: Glioma
     Route: 042
     Dates: start: 20230525, end: 20230525

REACTIONS (6)
  - Hypotension [Recovered/Resolved]
  - Conjunctival hyperaemia [Recovered/Resolved]
  - Cough [Recovered/Resolved]
  - Anaphylactic shock [Recovered/Resolved]
  - Diarrhoea [Recovered/Resolved]
  - Vomiting [Recovered/Resolved]

NARRATIVE: CASE EVENT DATE: 20230525
